FAERS Safety Report 4883488-1 (Version None)
Quarter: 2006Q1

REPORT INFORMATION
  Report Type: 
  Country: None (occurrence: None)
  Receive Date: 20060118
  Receipt Date: 20050218
  Transmission Date: 20060701
  Serious: Yes (Hospitalization)
  Sender: FDA-Public Use
  Company Number: US-MERCK-0502USA02868

PATIENT
  Age: 38 Year
  Sex: Female
  Weight: 95 kg

DRUGS (14)
  1. VIOXX [Suspect]
     Indication: ARTHRITIS
     Route: 048
     Dates: start: 20010101, end: 20050101
  2. PHENERGAN TABLETS/SUPPOSITORIES [Concomitant]
     Route: 065
  3. MIDRIN [Concomitant]
     Route: 065
  4. FLONASE [Concomitant]
     Route: 065
  5. ALBUTEROL [Concomitant]
     Route: 065
  6. CELEXA [Concomitant]
     Route: 065
  7. PROMETHAZINE [Concomitant]
     Route: 065
  8. IMITREX [Concomitant]
     Route: 065
  9. CIMETIDINE [Concomitant]
     Route: 065
  10. ALLEGRA [Concomitant]
     Route: 065
  11. IBUPROFEN [Concomitant]
     Route: 065
  12. FLEXERIL [Concomitant]
     Route: 065
  13. AMITRIPTYLINE HYDROCHLORIDE [Concomitant]
     Route: 065
  14. [THERAPY UNSPECIFIED] [Concomitant]
     Route: 065

REACTIONS (9)
  - ASTHENIA [None]
  - BACK PAIN [None]
  - CHEST PAIN [None]
  - DYSPNOEA [None]
  - HEART RATE INCREASED [None]
  - HEART RATE IRREGULAR [None]
  - NAUSEA [None]
  - OEDEMA PERIPHERAL [None]
  - VOMITING [None]
